FAERS Safety Report 8702370 (Version 2)
Quarter: 2013Q4

REPORT INFORMATION
  Report Type: Spontaneous
  Country: US (occurrence: US)
  Receive Date: 20120803
  Receipt Date: 20131101
  Transmission Date: 20140711
  Serious: No
  Sender: FDA-Public Use
  Company Number: US-009507513-1207USA001114

PATIENT
  Age: 72 Year
  Sex: Male

DRUGS (13)
  1. AZASITE [Suspect]
     Indication: CATARACT OPERATION
     Dosage: 1 DF, QD
     Route: 047
     Dates: start: 20120606
  2. DILAUDID [Concomitant]
  3. PREDNISOLONE ACETATE [Concomitant]
  4. DICLOFENAC [Concomitant]
  5. ZOCOR [Concomitant]
  6. FOSINOPRIL SODIUM [Concomitant]
  7. BUPROPION HYDROCHLORIDE [Concomitant]
  8. HYDROCODONE [Concomitant]
  9. PROVIGIL [Concomitant]
  10. LACTULOSE [Concomitant]
  11. VESICARE [Concomitant]
  12. MORPHINE [Concomitant]
  13. ZELAPAR [Concomitant]

REACTIONS (2)
  - Eye irritation [Not Recovered/Not Resolved]
  - Off label use [Unknown]
